FAERS Safety Report 9354819 (Version 3)
Quarter: 2013Q4

REPORT INFORMATION
  Report Type: Spontaneous
  Country: GB (occurrence: GB)
  Receive Date: 20130619
  Receipt Date: 20131029
  Transmission Date: 20140711
  Serious: Yes (Hospitalization, Disabling)
  Sender: FDA-Public Use
  Company Number: GB-ASTRAZENECA-2013SE42343

PATIENT
  Age: 25 Year
  Sex: Female

DRUGS (9)
  1. SEROQUEL [Suspect]
     Indication: PSYCHOTIC DISORDER
     Route: 048
  2. SEROQUEL [Suspect]
     Indication: PSYCHOTIC DISORDER
     Route: 048
     Dates: start: 20130408, end: 20130415
  3. CLARITHROMYCIN [Concomitant]
  4. CODEINE PHOSPHATE [Concomitant]
  5. PROCYCLIDINE [Concomitant]
  6. MIRTAZAPINE [Concomitant]
  7. CYCLIZINE HYDROCHLORIDE [Concomitant]
  8. MEBEVERINE [Concomitant]
  9. TRIMETHOPRIM [Concomitant]

REACTIONS (1)
  - Rhabdomyolysis [Recovering/Resolving]
